FAERS Safety Report 17674472 (Version 7)
Quarter: 2020Q4

REPORT INFORMATION
  Report Type: Report from Study
  Country: US (occurrence: US)
  Receive Date: 20200416
  Receipt Date: 20201118
  Transmission Date: 20210113
  Serious: No
  Sender: FDA-Public Use
  Company Number: US-BIOVITRUM-2019US3740

PATIENT
  Age: 39 Year
  Sex: Male

DRUGS (14)
  1. KINERET [Suspect]
     Active Substance: ANAKINRA
     Indication: ADRENOCORTICAL INSUFFICIENCY ACUTE
     Route: 058
     Dates: start: 20191009
  2. KINERET [Suspect]
     Active Substance: ANAKINRA
  3. KINERET [Suspect]
     Active Substance: ANAKINRA
     Route: 058
     Dates: start: 20191008
  4. DULOXETINE. [Concomitant]
     Active Substance: DULOXETINE
     Indication: PRODUCT USED FOR UNKNOWN INDICATION
  5. PREDNISONE. [Concomitant]
     Active Substance: PREDNISONE
     Indication: PRODUCT USED FOR UNKNOWN INDICATION
  6. ZYRTEC [Concomitant]
     Active Substance: CETIRIZINE HYDROCHLORIDE
     Indication: PRODUCT USED FOR UNKNOWN INDICATION
  7. FINASTERIDE. [Concomitant]
     Active Substance: FINASTERIDE
     Indication: PRODUCT USED FOR UNKNOWN INDICATION
  8. TESTOSTERONE. [Concomitant]
     Active Substance: TESTOSTERONE
     Indication: PRODUCT USED FOR UNKNOWN INDICATION
  9. PROBIOTICS [Concomitant]
     Active Substance: PROBIOTICS NOS
     Indication: PRODUCT USED FOR UNKNOWN INDICATION
  10. TOPAMAX [Concomitant]
     Active Substance: TOPIRAMATE
     Indication: PRODUCT USED FOR UNKNOWN INDICATION
  11. METOPROLOL. [Concomitant]
     Active Substance: METOPROLOL
     Indication: PRODUCT USED FOR UNKNOWN INDICATION
  12. FAMOTIDINE. [Concomitant]
     Active Substance: FAMOTIDINE
     Indication: PRODUCT USED FOR UNKNOWN INDICATION
  13. KINERET [Suspect]
     Active Substance: ANAKINRA
     Indication: MUCKLE-WELLS SYNDROME
     Dosage: DURING FLARES INJECT FOR MAX 5 DAYS
     Route: 058
     Dates: start: 20191008
  14. KINERET [Suspect]
     Active Substance: ANAKINRA
     Indication: JUVENILE IDIOPATHIC ARTHRITIS
     Route: 058
     Dates: start: 20191007

REACTIONS (22)
  - Product dose omission issue [Unknown]
  - Off label use [Not Recovered/Not Resolved]
  - Gait disturbance [Unknown]
  - Dry eye [Unknown]
  - Blister [Unknown]
  - Vocal cord paralysis [Recovered/Resolved]
  - Muckle-Wells syndrome [Unknown]
  - Rash [Unknown]
  - Emotional disorder [Unknown]
  - Infection [Recovered/Resolved]
  - Urinary tract infection [Unknown]
  - Lymphocyte count increased [Recovered/Resolved]
  - Lethargy [Unknown]
  - Bladder disorder [Unknown]
  - White blood cell count decreased [Unknown]
  - Condition aggravated [Not Recovered/Not Resolved]
  - Injection site pruritus [Unknown]
  - Injection site swelling [Unknown]
  - Injection site urticaria [Recovering/Resolving]
  - Injection site erythema [Unknown]
  - Lymphocyte count decreased [Unknown]
  - Urticaria [Recovering/Resolving]

NARRATIVE: CASE EVENT DATE: 20191008
